FAERS Safety Report 4647136-8 (Version None)
Quarter: 2005Q2

REPORT INFORMATION
  Report Type: 
  Country: None (occurrence: None)
  Receive Date: 20050428
  Receipt Date: 20050419
  Transmission Date: 20051028
  Serious: Yes (Other)
  Sender: FDA-Public Use
  Company Number: CA-JNJFOC-20050202874

PATIENT
  Sex: Male
  Weight: 136 kg

DRUGS (16)
  1. REMICADE [Suspect]
     Indication: RHEUMATOID ARTHRITIS
     Route: 042
  2. PREDNISONE [Concomitant]
     Indication: RHEUMATOID ARTHRITIS
     Route: 049
  3. PLAQUENIL [Concomitant]
     Indication: RHEUMATOID ARTHRITIS
     Route: 049
  4. EURO D [Concomitant]
     Route: 049
  5. EURO D [Concomitant]
     Indication: NUTRITIONAL SUPPORT
     Route: 049
  6. DILANTIN [Concomitant]
     Route: 049
  7. DILANTIN [Concomitant]
     Route: 049
  8. FOSAMAX [Concomitant]
     Indication: OSTEOPOROSIS
  9. GLYBURIDE [Concomitant]
  10. PLAVIX [Concomitant]
     Indication: ANTICOAGULANT THERAPY
  11. PRAVACHOL [Concomitant]
  12. ATACAND [Concomitant]
  13. CALCIUM GLUCONATE [Concomitant]
     Indication: NUTRITIONAL SUPPORT
  14. NITROSPRAY [Concomitant]
  15. ADALAT [Concomitant]
  16. LOPRESSOR [Concomitant]

REACTIONS (5)
  - ARTERIAL OCCLUSIVE DISEASE [None]
  - DYSPNOEA [None]
  - ERYTHEMA [None]
  - HERPES ZOSTER [None]
  - INFUSION RELATED REACTION [None]
